FAERS Safety Report 4996577-8 (Version None)
Quarter: 2006Q2

REPORT INFORMATION
  Report Type: 
  Country: None (occurrence: None)
  Receive Date: 20060503
  Receipt Date: 20060425
  Transmission Date: 20061013
  Serious: Yes (Death)
  Sender: FDA-Public Use
  Company Number: JP-2006-008906

PATIENT
  Age: 58 Year
  Sex: Male

DRUGS (6)
  1. SOTALOL HCL [Suspect]
     Dosage: 20 MG, 2X/DAY, ORAL
     Route: 048
     Dates: start: 20041022
  2. BLOPRESS (CANDESARTAN CILEXETIL) [Concomitant]
  3. LASIX [Concomitant]
  4. LIPITOR [Concomitant]
  5. PANALDINE (TICLODIPINE HYDROCHLORIDE) [Concomitant]
  6. SIGMART (NICORANDIL) [Concomitant]

REACTIONS (1)
  - CARDIO-RESPIRATORY ARREST [None]
